FAERS Safety Report 4407757-4 (Version None)
Quarter: 2004Q3

REPORT INFORMATION
  Report Type: 
  Country: None (occurrence: None)
  Receive Date: 20040721
  Receipt Date: 20040510
  Transmission Date: 20050211
  Serious: Yes (Hospitalization)
  Sender: FDA-Public Use
  Company Number: 2004-BP-03626B[(0)

PATIENT
  Age: 55 Year
  Sex: Male

DRUGS (7)
  1. AGGRENOX [Suspect]
     Indication: CEREBROVASCULAR ACCIDENT PROPHYLAXIS
     Dosage: SEE IMAGE
     Route: 048
     Dates: start: 20040101, end: 20040509
  2. LOPID [Suspect]
     Indication: BLOOD CHOLESTEROL INCREASED
     Dates: start: 20040501
  3. ASPIRIN [Concomitant]
  4. CARDIZEM [Concomitant]
  5. LIPITOR [Concomitant]
  6. OXYCONTIN [Concomitant]
  7. VIAGRA [Concomitant]

REACTIONS (7)
  - ACUTE RESPIRATORY FAILURE [None]
  - ANGIONEUROTIC OEDEMA [None]
  - BLISTER [None]
  - INFLAMMATION [None]
  - OBSTRUCTIVE AIRWAYS DISORDER [None]
  - SUNBURN [None]
  - THERAPY NON-RESPONDER [None]
